FAERS Safety Report 8249355-0 (Version None)
Quarter: 2012Q1

REPORT INFORMATION
  Report Type: 
  Country: None (occurrence: None)
  Receive Date: 20120327
  Receipt Date: 20120314
  Transmission Date: 20120608
  Serious: Yes (Hospitalization)
  Sender: FDA-Public Use
  Company Number: 2012030246

PATIENT
  Age: 73 Year
  Sex: Male

DRUGS (11)
  1. DOMPERIDONE (DOMPERIDONE) [Concomitant]
  2. DALTEPARIN SODIUM [Suspect]
     Indication: LUNG NEOPLASM MALIGNANT
     Dates: start: 20111206, end: 20120131
  3. SIMVASTATIN [Concomitant]
  4. ORAMORPH SR [Concomitant]
  5. INFUMORPH [Concomitant]
  6. ACETAMINOPHEN [Concomitant]
  7. CARBOPLATIN [Suspect]
     Dosage: 340 MG, INTRAVENOUS
     Route: 042
     Dates: start: 20111207
  8. OMEPRAZOLE [Concomitant]
  9. DEXAMETHASONE [Concomitant]
  10. GEMCITABINE [Suspect]
     Dosage: INTRAVENOUS
     Route: 042
     Dates: start: 20111207
  11. DILTIAZEM [Concomitant]

REACTIONS (8)
  - METASTASES TO SPINE [None]
  - NEOPLASM PROGRESSION [None]
  - HAEMOGLOBIN DECREASED [None]
  - BODY TEMPERATURE INCREASED [None]
  - LOWER RESPIRATORY TRACT INFECTION [None]
  - LUNG NEOPLASM MALIGNANT [None]
  - PLATELET COUNT DECREASED [None]
  - NEUTROPENIA [None]
